FAERS Safety Report 10458493 (Version 3)
Quarter: 2014Q4

REPORT INFORMATION
  Report Type: Spontaneous
  Country: IT (occurrence: IT)
  Receive Date: 20140917
  Receipt Date: 20141112
  Transmission Date: 20150528
  Serious: Yes (Hospitalization)
  Sender: FDA-Public Use
  Company Number: IT-AUROBINDO-AUR-APL-2014-09407

PATIENT
  Age: 60 Year
  Sex: Male

DRUGS (3)
  1. MEDROL [Suspect]
     Active Substance: METHYLPREDNISOLONE
     Indication: ALLERGY TO ARTHROPOD STING
     Dosage: UNK
     Route: 065
     Dates: start: 20130831
  2. CEFUROXIME. [Suspect]
     Active Substance: CEFUROXIME
     Indication: ALLERGY TO ARTHROPOD STING
     Dosage: UNK
     Route: 065
     Dates: start: 20130831
  3. IGANTET [Suspect]
     Active Substance: HUMAN CLOSTRIDIUM TETANI TOXOID IMMUNE GLOBULIN
     Indication: PRODUCT USED FOR UNKNOWN INDICATION
     Dosage: UNK
     Route: 065
     Dates: start: 20130904

REACTIONS (3)
  - Balance disorder [Recovering/Resolving]
  - Presyncope [Recovering/Resolving]
  - Asthenia [Recovering/Resolving]

NARRATIVE: CASE EVENT DATE: 20130906
